FAERS Safety Report 10253627 (Version 1)
Quarter: 2014Q2

REPORT INFORMATION
  Report Type: Spontaneous
  Country: FR (occurrence: FR)
  Receive Date: 20140623
  Receipt Date: 20140623
  Transmission Date: 20141212
  Serious: Yes (Hospitalization)
  Sender: FDA-Public Use
  Company Number: PHHY2014FR076700

PATIENT
  Age: 88 Year
  Sex: Female
  Weight: 53.3 kg

DRUGS (5)
  1. ESIDREX [Suspect]
     Dosage: 12.5 MG, QD
     Route: 048
     Dates: start: 20140422, end: 20140505
  2. SEROPLEX [Suspect]
     Dosage: 5 MG, QD
     Route: 048
     Dates: start: 20140422, end: 20140505
  3. SERESTA [Concomitant]
     Dosage: 10 MG, TID IF NECESSARY
     Route: 048
     Dates: start: 20140422
  4. COUMADINE [Concomitant]
     Dosage: 4 MG, QD
     Route: 048
     Dates: start: 20140422
  5. DOLIPRANE [Concomitant]
     Dosage: 1000 MG, TID IF NECESSARY
     Dates: start: 20140422

REACTIONS (1)
  - Hyponatraemia [Recovered/Resolved]
